FAERS Safety Report 7273711-0 (Version None)
Quarter: 2011Q1

REPORT INFORMATION
  Report Type: 
  Country: None (occurrence: None)
  Receive Date: 20110203
  Receipt Date: 20110125
  Transmission Date: 20110831
  Serious: Yes (Hospitalization)
  Sender: FDA-Public Use
  Company Number: FR-BAXTER-2011BH002225

PATIENT
  Age: 40 Year
  Sex: Female

DRUGS (5)
  1. CALCIUM FOLINATE GENERIC [Suspect]
     Indication: BREAST CANCER
     Route: 042
     Dates: start: 20100615, end: 20101109
  2. NAVELBINE [Suspect]
     Indication: BREAST CANCER
     Route: 065
     Dates: end: 20101109
  3. CYCLOPHOSPHAMIDE [Suspect]
     Indication: BREAST CANCER
     Route: 042
     Dates: start: 20100615, end: 20101109
  4. PACLITAXEL [Suspect]
     Indication: BREAST CANCER
     Route: 042
     Dates: start: 20101109, end: 20101109
  5. FLUOROURACIL [Suspect]
     Indication: BREAST CANCER
     Route: 042
     Dates: start: 20100615, end: 20101109

REACTIONS (2)
  - PYREXIA [None]
  - CHILLS [None]
